FAERS Safety Report 5322805-5 (Version None)
Quarter: 2007Q2

REPORT INFORMATION
  Report Type: 
  Country: None (occurrence: None)
  Receive Date: 20070511
  Receipt Date: 20070501
  Transmission Date: 20071010
  Serious: Yes (Other)
  Sender: FDA-Public Use
  Company Number: US-PFIZER INC-2007022352

PATIENT
  Sex: Female
  Weight: 68 kg

DRUGS (15)
  1. CELEBREX [Suspect]
     Indication: PAIN IN EXTREMITY
  2. CELEBREX [Suspect]
     Indication: ARTHRALGIA
  3. CELEBREX [Suspect]
     Indication: SCIATICA
  4. CELEBREX [Suspect]
     Indication: BONE PAIN
  5. ZYRTEC [Suspect]
     Indication: HYPERSENSITIVITY
  6. XANAX [Suspect]
     Indication: ANXIETY
  7. ZIAC [Concomitant]
  8. PRILOSEC [Concomitant]
  9. PRAVASTATIN [Concomitant]
  10. TAMOXIFEN CITRATE [Concomitant]
  11. PREVACID [Concomitant]
  12. PRAVACHOL [Concomitant]
  13. ACETYLSALICYLIC ACID SRT [Concomitant]
  14. VITAMIN CAP [Concomitant]
  15. ACIDOPHILUS [Concomitant]

REACTIONS (6)
  - BLOOD TRIGLYCERIDES INCREASED [None]
  - DRY EYE [None]
  - EYE IRRITATION [None]
  - EYE PRURITUS [None]
  - GLAUCOMA [None]
  - SKIN BURNING SENSATION [None]
